FAERS Safety Report 6730469-9 (Version None)
Quarter: 2010Q2

REPORT INFORMATION
  Report Type: 
  Country: None (occurrence: None)
  Receive Date: 20100514
  Receipt Date: 20100430
  Transmission Date: 20101027
  Serious: Yes (Hospitalization)
  Sender: FDA-Public Use
  Company Number: 1000013726

PATIENT
  Age: 97 Year
  Sex: Female
  Weight: 43.2 kg

DRUGS (10)
  1. LEXAPRO [Suspect]
     Indication: ANXIETY
     Dosage: 5 MG, ORAL
     Route: 048
  2. LONG ACTING TOLTERODINE TARTRATE [Concomitant]
  3. ATENOLOL [Concomitant]
  4. FUROSEMIDE [Concomitant]
  5. LISINOPRIL [Concomitant]
  6. LORAZEPAM [Concomitant]
  7. DOCUSATE [Concomitant]
  8. CIPROFLOXACIN [Concomitant]
  9. METHYLCELLULOSE [Concomitant]
  10. MULTI-VITAMIN [Concomitant]

REACTIONS (8)
  - ATRIAL FIBRILLATION [None]
  - BLOOD MAGNESIUM DECREASED [None]
  - BLOOD POTASSIUM DECREASED [None]
  - BLOOD PRESSURE INCREASED [None]
  - FALL [None]
  - INAPPROPRIATE ANTIDIURETIC HORMONE SECRETION [None]
  - SPINAL FRACTURE [None]
  - URINARY TRACT INFECTION [None]
